FAERS Safety Report 24526686 (Version 1)
Quarter: 2024Q4

REPORT INFORMATION
  Report Type: Report from Study
  Country: US (occurrence: US)
  Receive Date: 20241021
  Receipt Date: 20241021
  Transmission Date: 20250115
  Serious: No
  Sender: ROCHE
  Company Number: US-ROCHE-3134786

PATIENT
  Age: 56 Year
  Sex: Male

DRUGS (1)
  1. ZELBORAF [Suspect]
     Active Substance: VEMURAFENIB
     Indication: Hairy cell leukaemia
     Dosage: TAKE 1 TABLET BY MOUTH DAILY
     Route: 048

REACTIONS (4)
  - Muscle spasms [Unknown]
  - Myalgia [Unknown]
  - Off label use [Unknown]
  - Urine abnormality [Unknown]
